FAERS Safety Report 8927231 (Version 1)
Quarter: 2012Q4

REPORT INFORMATION
  Report Type: 
  Country: US (occurrence: US)
  Receive Date: 20121127
  Receipt Date: 20121127
  Transmission Date: 20130627
  Serious: Yes (Other)
  Sender: FDA-Public Use
  Company Number: US-JNJFOC-20121110730

PATIENT
  Age: 52 None
  Sex: Female
  Weight: 45.36 kg

DRUGS (4)
  1. DURAGESIC [Suspect]
     Indication: BACK PAIN
     Route: 062
     Dates: start: 2011
  2. LORAZEPAM [Concomitant]
     Indication: BIPOLAR DISORDER
     Route: 048
     Dates: start: 2012
  3. LORAZEPAM [Concomitant]
     Indication: BIPOLAR DISORDER
     Route: 048
     Dates: start: 2011
  4. LORAZEPAM [Concomitant]
     Indication: BIPOLAR DISORDER
     Route: 048
     Dates: start: 2012

REACTIONS (5)
  - Bipolar disorder [Recovered/Resolved]
  - Blood cholesterol increased [Recovered/Resolved]
  - Malaise [Recovered/Resolved]
  - Product packaging quantity issue [Unknown]
  - Inappropriate schedule of drug administration [Unknown]
